FAERS Safety Report 25247262 (Version 1)
Quarter: 2025Q2

REPORT INFORMATION
  Report Type: Spontaneous
  Country: IT (occurrence: IT)
  Receive Date: 20250428
  Receipt Date: 20250428
  Transmission Date: 20250716
  Serious: Yes (Other)
  Sender: ELI LILLY AND COMPANY
  Company Number: None

PATIENT
  Age: 67 Year
  Sex: Male

DRUGS (8)
  1. CYMBALTA [Suspect]
     Active Substance: DULOXETINE HYDROCHLORIDE
     Indication: Depression
     Dosage: 30 MG, DAILY
     Route: 048
     Dates: start: 20241014, end: 20241021
  2. BISOPROLOL FUMARATE [Concomitant]
     Active Substance: BISOPROLOL FUMARATE
     Indication: Hypertension
     Dosage: 1.25 MG, DAILY
     Route: 048
  3. BISOPROLOL FUMARATE [Concomitant]
     Active Substance: BISOPROLOL FUMARATE
     Indication: Myocardial ischaemia
  4. EZETIMIBE [Concomitant]
     Active Substance: EZETIMIBE
     Indication: Dyslipidaemia
     Dosage: 10 MG, DAILY
     Route: 048
  5. ZOFENOPRIL MYLAN [Concomitant]
     Indication: Hypertension
     Dosage: 30 MG, DAILY
     Route: 048
  6. ZOFENOPRIL MYLAN [Concomitant]
     Indication: Myocardial ischaemia
  7. ALFUZOSINA AUROBINDO [Concomitant]
     Indication: Benign prostatic hyperplasia
     Dosage: 10 MG, DAILY
     Route: 048
  8. PANTOPRAZOLO KRKA [Concomitant]
     Indication: Gastrooesophageal reflux disease
     Dosage: 20 MG, DAILY
     Route: 048

REACTIONS (4)
  - Dystonia [Recovered/Resolved]
  - Torticollis [Recovered/Resolved]
  - Palpitations [Recovered/Resolved]
  - Tachycardia [Recovered/Resolved]

NARRATIVE: CASE EVENT DATE: 20241016
